FAERS Safety Report 20892677 (Version 1)
Quarter: 2022Q2

REPORT INFORMATION
  Report Type: Spontaneous
  Country: RS (occurrence: RS)
  Receive Date: 20220531
  Receipt Date: 20220531
  Transmission Date: 20220721
  Serious: Yes (Other)
  Sender: FDA-Public Use
  Company Number: RS-PFIZER INC-202200752450

PATIENT
  Age: 65 Year
  Sex: Female

DRUGS (16)
  1. ENBREL [Suspect]
     Active Substance: ETANERCEPT
     Indication: Product used for unknown indication
     Dosage: 50 MG, WEEKLY;  IN 2010 DUE TO TECHNIAL REASONS, THE PATIENT DID NOT RECEIVE ETANERCEPT FOR 3 MONTS
     Route: 058
     Dates: start: 200909, end: 2010
  2. ENBREL [Suspect]
     Active Substance: ETANERCEPT
     Dosage: UNK
     Route: 065
     Dates: end: 201209
  3. ENBREL [Suspect]
     Active Substance: ETANERCEPT
     Dosage: 50 MG
     Route: 058
     Dates: end: 201406
  4. ENBREL [Suspect]
     Active Substance: ETANERCEPT
     Dosage: 50 MG
     Route: 058
     Dates: start: 201503
  5. ENBREL [Suspect]
     Active Substance: ETANERCEPT
     Dosage: 50 MG FOR 2 WEEKS
     Route: 065
     Dates: start: 201806
  6. ENBREL [Suspect]
     Active Substance: ETANERCEPT
     Dosage: 50 MG FOR 2 WEEKS
     Route: 058
     Dates: start: 2021
  7. METHOTREXATE [Suspect]
     Active Substance: METHOTREXATE
     Indication: Rheumatoid arthritis
     Dosage: 10...15 MG
     Route: 065
  8. METHOTREXATE [Suspect]
     Active Substance: METHOTREXATE
     Dosage: 15 MG
     Route: 048
     Dates: start: 2008, end: 201803
  9. PRONISON [Suspect]
     Active Substance: PREDNISONE
     Indication: Product used for unknown indication
     Dosage: 10 MG
     Route: 065
  10. PRONISON [Suspect]
     Active Substance: PREDNISONE
     Dosage: 10/5 MG
     Route: 065
  11. PRONISON [Suspect]
     Active Substance: PREDNISONE
     Dosage: 5 MG
     Route: 065
     Dates: start: 2010, end: 2012
  12. METHOTREXATE SODIUM [Suspect]
     Active Substance: METHOTREXATE SODIUM
     Indication: Product used for unknown indication
     Dosage: 15 MG; PARENTAL-SUBCUTENEOUS
     Route: 065
     Dates: start: 2018
  13. FOLIC ACID [Concomitant]
     Active Substance: FOLIC ACID
     Dosage: UNK
  14. MELOXICAM [Concomitant]
     Active Substance: MELOXICAM
     Dosage: 15 MG
  15. DIPROPHOS [Concomitant]
     Active Substance: BETAMETHASONE DIPROPIONATE\BETAMETHASONE SODIUM PHOSPHATE
     Dosage: UNK
     Route: 014
  16. SULFASALAZINE [Concomitant]
     Active Substance: SULFASALAZINE
     Dosage: 2 G

REACTIONS (6)
  - Cataract [Recovered/Resolved]
  - Atrial septal defect [Unknown]
  - Atrial septal defect [Unknown]
  - Cerebrovascular accident [Unknown]
  - Hypertension [Unknown]
  - Urinary tract infection [Unknown]

NARRATIVE: CASE EVENT DATE: 20120901
